FAERS Safety Report 4978282-7 (Version None)
Quarter: 2006Q2

REPORT INFORMATION
  Report Type: 
  Country: None (occurrence: None)
  Receive Date: 20060417
  Receipt Date: 20060406
  Transmission Date: 20061013
  Serious: Yes (Hospitalization)
  Sender: FDA-Public Use
  Company Number: 2006_000009

PATIENT
  Sex: Female

DRUGS (2)
  1. DEPOCYT [Suspect]
     Indication: BREAST CANCER METASTATIC
     Dosage: 50 MG;X1;INTH
     Route: 037
     Dates: start: 20060315, end: 20060315
  2. DECADRON [Concomitant]

REACTIONS (2)
  - HEADACHE [None]
  - PNEUMONIA [None]
